FAERS Safety Report 5367682-1 (Version None)
Quarter: 2007Q2

REPORT INFORMATION
  Report Type: 
  Country: None (occurrence: None)
  Receive Date: 20070622
  Receipt Date: 20070116
  Transmission Date: 20071010
  Serious: No
  Sender: FDA-Public Use
  Company Number: US-ASTRAZENECA-2007UW00759

PATIENT
  Age: 7 Year
  Sex: Male
  Weight: 24.9 kg

DRUGS (5)
  1. PULMICORT RESPULES [Suspect]
     Indication: WHEEZING
     Route: 055
  2. PULMICORT RESPULES [Suspect]
     Indication: COUGH
     Route: 055
  3. PULMICORT RESPULES [Suspect]
     Indication: RESPIRATORY TRACT INFECTION
     Route: 055
  4. XOPENEX [Suspect]
  5. ZITHROMAX [Concomitant]

REACTIONS (1)
  - URTICARIA [None]
